FAERS Safety Report 7824327-6 (Version None)
Quarter: 2011Q4

REPORT INFORMATION
  Report Type: 
  Country: None (occurrence: None)
  Receive Date: 20111019
  Receipt Date: 20111005
  Transmission Date: 20120403
  Serious: Yes (Other)
  Sender: FDA-Public Use
  Company Number: IT-BAYER-2011-095398

PATIENT
  Age: 21 Year
  Sex: Female

DRUGS (2)
  1. ASPIRINA CON VITAMINA C [Suspect]
     Indication: HYPERPYREXIA
     Dosage: DAILY DOSE 640 MG
     Route: 048
     Dates: start: 20111002, end: 20111002
  2. BRONCHO-MUNAL [Concomitant]
     Dosage: UNK
     Route: 048
     Dates: start: 20110910, end: 20111003

REACTIONS (1)
  - ANGIOEDEMA [None]
